FAERS Safety Report 19669438 (Version 1)
Quarter: 2021Q3

REPORT INFORMATION
  Report Type: Spontaneous
  Country: US (occurrence: US)
  Receive Date: 20210806
  Receipt Date: 20210806
  Transmission Date: 20211014
  Serious: Yes (Other)
  Sender: FDA-Public Use
  Company Number: US-ABBVIE-21K-163-4022239-00

PATIENT
  Sex: Female
  Weight: 59.93 kg

DRUGS (1)
  1. SYNTHROID [Suspect]
     Active Substance: LEVOTHYROXINE SODIUM
     Indication: HYPOTHYROIDISM
     Route: 048
     Dates: start: 2014

REACTIONS (4)
  - Gastrointestinal disorder [Unknown]
  - Malaise [Unknown]
  - Renal surgery [Unknown]
  - Gastrointestinal bacterial overgrowth [Unknown]
